FAERS Safety Report 7900622-7 (Version None)
Quarter: 2011Q4

REPORT INFORMATION
  Report Type: 
  Country: None (occurrence: None)
  Receive Date: 20111104
  Receipt Date: 20111024
  Transmission Date: 20120403
  Serious: Yes (Hospitalization, Other)
  Sender: FDA-Public Use
  Company Number: 2011P1009676

PATIENT
  Age: 20 Year
  Sex: Female

DRUGS (3)
  1. ISONIAZID [Suspect]
     Indication: TUBERCULOSIS
     Dates: start: 20100301
  2. ETHAMBUTOL HYDROCHLORIDE [Suspect]
     Indication: TUBERCULOSIS
     Dates: start: 20100301
  3. OFLOXACIN [Suspect]
     Indication: TUBERCULOSIS
     Dates: start: 20100301

REACTIONS (3)
  - VOMITING [None]
  - PANCREATITIS ACUTE [None]
  - ABDOMINAL RIGIDITY [None]
